FAERS Safety Report 9684541 (Version 2)
Quarter: 2014Q1

REPORT INFORMATION
  Report Type: Spontaneous
  Country: GB (occurrence: GB)
  Receive Date: 20131112
  Receipt Date: 20140211
  Transmission Date: 20141002
  Serious: Yes (Other)
  Sender: FDA-Public Use
  Company Number: PHHY2013GB125950

PATIENT
  Age: 49 Year
  Sex: Female

DRUGS (9)
  1. CITALOPRAM [Suspect]
     Indication: DEPRESSION
     Dosage: 10 MG, UNK
  2. IBUPROFEN [Suspect]
     Indication: PAIN IN EXTREMITY
     Dosage: 400 MG, UNK
     Route: 048
     Dates: end: 20131029
  3. TEMAZEPAM [Concomitant]
     Indication: ANXIETY
  4. PARACETAMOL [Concomitant]
  5. QVAR [Concomitant]
     Indication: ASTHMA
  6. SALAMOL (SALBUTAMOL SULFATE) [Concomitant]
     Indication: ASTHMA
  7. SEREVENT [Concomitant]
     Indication: ASTHMA
  8. FEMSEVEN [Concomitant]
     Indication: HORMONE REPLACEMENT THERAPY
  9. DIAZEPAM [Concomitant]
     Indication: ANXIETY

REACTIONS (2)
  - Rectal haemorrhage [Recovered/Resolved]
  - Drug interaction [Unknown]
